FAERS Safety Report 5777974-X (Version None)
Quarter: 2008Q2

REPORT INFORMATION
  Report Type: 
  Country: None (occurrence: None)
  Receive Date: 20080617
  Receipt Date: 20080605
  Transmission Date: 20081010
  Serious: Yes (Hospitalization)
  Sender: FDA-Public Use
  Company Number: FPI-08-REP-0029

PATIENT
  Sex: Female
  Weight: 63.9572 kg

DRUGS (4)
  1. REPRONEX 75 IU FSH; 75 IU LH [Suspect]
     Indication: INFERTILITY FEMALE
     Dosage: SEE IMAGE
     Dates: start: 20080523, end: 20080524
  2. REPRONEX 75 IU FSH; 75 IU LH [Suspect]
     Indication: INFERTILITY FEMALE
     Dosage: SEE IMAGE
     Dates: start: 20080525
  3. LUPRON MICRODOSE SQ [Concomitant]
  4. BRAVELLE [Concomitant]

REACTIONS (5)
  - INJECTION SITE CELLULITIS [None]
  - INJECTION SITE ERYTHEMA [None]
  - INJECTION SITE SWELLING [None]
  - PAIN [None]
  - PHARMACEUTICAL PRODUCT COMPLAINT [None]
